FAERS Safety Report 4899039-1 (Version None)
Quarter: 2006Q1

REPORT INFORMATION
  Report Type: 
  Country: None (occurrence: None)
  Receive Date: 20060202
  Receipt Date: 20051104
  Transmission Date: 20060701
  Serious: Yes (Hospitalization)
  Sender: FDA-Public Use
  Company Number: JP-BRISTOL-MYERS SQUIBB COMPANY-13178777

PATIENT
  Age: 85 Year
  Sex: Female

DRUGS (7)
  1. ENDOXAN [Suspect]
     Indication: ANTINEUTROPHIL CYTOPLASMIC ANTIBODY POSITIVE
     Route: 048
     Dates: start: 20010930, end: 20050726
  2. CRAVIT [Concomitant]
  3. GASTER D [Concomitant]
  4. COTRIM [Concomitant]
  5. ALFAROL [Concomitant]
  6. FUNGIZONE [Concomitant]
  7. PREDONINE [Concomitant]

REACTIONS (3)
  - CYSTITIS HAEMORRHAGIC [None]
  - HAEMATURIA [None]
  - URINARY INCONTINENCE [None]
